FAERS Safety Report 6304845-2 (Version None)
Quarter: 2009Q3

REPORT INFORMATION
  Report Type: 
  Country: None (occurrence: None)
  Receive Date: 20090811
  Receipt Date: 20090807
  Transmission Date: 20100115
  Serious: Yes (Death, Life-Threatening, Hospitalization, Other)
  Sender: FDA-Public Use
  Company Number: US-BAYER-200925917GPV

PATIENT
  Age: 79 Year
  Sex: Male

DRUGS (11)
  1. SORAFENIB [Suspect]
     Indication: HEPATIC NEOPLASM MALIGNANT
     Dosage: TOTAL DAILY DOSE: 800 MG
     Route: 048
     Dates: start: 20090619, end: 20090630
  2. AMLODIPINE BESILATE [Concomitant]
     Route: 048
  3. MEFRUSIDE [Concomitant]
     Route: 048
  4. POTASSIUM CHLORIDE [Concomitant]
     Route: 048
  5. URSODIOL [Concomitant]
     Route: 048
  6. GLYCYRRHIZIC ACID, AMMONIUM SALT [Concomitant]
     Route: 048
  7. TEPRENONE [Concomitant]
     Route: 048
  8. PROHEPARUM [Concomitant]
     Route: 048
  9. KETOPROFEN [Concomitant]
     Route: 061
  10. UREA [Concomitant]
     Dates: start: 20090619, end: 20090703
  11. PREDNISOLONE [Concomitant]
     Dates: start: 20090630, end: 20090704

REACTIONS (9)
  - DISSEMINATED INTRAVASCULAR COAGULATION [None]
  - ERYTHEMA MULTIFORME [None]
  - HEPATIC FAILURE [None]
  - INTERSTITIAL LUNG DISEASE [None]
  - MULTI-ORGAN FAILURE [None]
  - PALMAR-PLANTAR ERYTHRODYSAESTHESIA SYNDROME [None]
  - RENAL FAILURE ACUTE [None]
  - RHABDOMYOLYSIS [None]
  - SEPTIC SHOCK [None]
